FAERS Safety Report 7713730-0 (Version None)
Quarter: 2011Q3

REPORT INFORMATION
  Report Type: 
  Country: None (occurrence: None)
  Receive Date: 20110826
  Receipt Date: 20110823
  Transmission Date: 20111222
  Serious: Yes (Hospitalization)
  Sender: FDA-Public Use
  Company Number: DE-ABBOTT-11P-062-0848669-00

PATIENT
  Sex: Female

DRUGS (3)
  1. CORTISONE ACETATE [Concomitant]
     Indication: PRODUCT USED FOR UNKNOWN INDICATION
  2. ACETAMINOPHEN [Concomitant]
     Indication: PRODUCT USED FOR UNKNOWN INDICATION
  3. HUMIRA [Suspect]
     Indication: CROHN'S DISEASE
     Route: 058
     Dates: start: 20080425

REACTIONS (6)
  - INTESTINAL STENOSIS [None]
  - DIARRHOEA [None]
  - VIRAL INFECTION [None]
  - LACRIMATION INCREASED [None]
  - NASOPHARYNGITIS [None]
  - EAR PAIN [None]
